FAERS Safety Report 21950259 (Version 10)
Quarter: 2024Q4

REPORT INFORMATION
  Report Type: Report from Study
  Country: JP (occurrence: JP)
  Receive Date: 20230203
  Receipt Date: 20241114
  Transmission Date: 20250115
  Serious: Yes (Life-Threatening, Hospitalization)
  Sender: ABBVIE
  Company Number: JP-ABBVIE-21K-087-3846388-00

PATIENT
  Age: 86 Year
  Sex: Male
  Weight: 58 kg

DRUGS (9)
  1. RINVOQ [Suspect]
     Active Substance: UPADACITINIB
     Indication: Rheumatoid arthritis
     Dosage: 15 MILLIGRAM?LAST ADMIN DATE: 2020
     Route: 048
     Dates: start: 20201022
  2. RINVOQ [Suspect]
     Active Substance: UPADACITINIB
     Indication: Rheumatoid arthritis
     Route: 048
     Dates: start: 20201113
  3. RINVOQ [Suspect]
     Active Substance: UPADACITINIB
     Indication: Rheumatoid arthritis
     Route: 048
     Dates: start: 20210305, end: 20210314
  4. RINVOQ [Suspect]
     Active Substance: UPADACITINIB
     Indication: Rheumatoid arthritis
     Route: 048
     Dates: start: 20210401
  5. RINVOQ [Suspect]
     Active Substance: UPADACITINIB
     Indication: Rheumatoid arthritis
     Dosage: DECREASED?FORM STRENGTH: 15 MILLIGRAM
     Route: 048
     Dates: end: 20230707
  6. RINVOQ [Suspect]
     Active Substance: UPADACITINIB
     Indication: Rheumatoid arthritis
     Dosage: FORM STRENGTH: 15 MILLIGRAM
     Route: 048
  7. TENOFOVIR ALAFENAMIDE FUMARATE [Concomitant]
     Active Substance: TENOFOVIR ALAFENAMIDE FUMARATE
     Indication: Hepatitis B reactivation
     Dosage: 25 MILLIGRAM
     Route: 048
     Dates: start: 20220315
  8. CANDESARTAN CILEXETIL [Concomitant]
     Active Substance: CANDESARTAN CILEXETIL
     Indication: Product used for unknown indication
     Route: 048
  9. DONEPEZIL HYDROCHLORIDE [Concomitant]
     Active Substance: DONEPEZIL HYDROCHLORIDE
     Indication: Product used for unknown indication
     Route: 048

REACTIONS (10)
  - Hepatitis B reactivation [Recovered/Resolved]
  - Herpes zoster [Recovering/Resolving]
  - Pneumonia [Recovered/Resolved]
  - Tuberculosis [Recovering/Resolving]
  - Cytomegalovirus test positive [Recovered/Resolved]
  - Fungal infection [Recovered/Resolved]
  - Pleural effusion [Recovered/Resolved]
  - Herpes zoster [Recovered/Resolved]
  - Pneumonia aspiration [Unknown]
  - Pulmonary tuberculosis [Unknown]

NARRATIVE: CASE EVENT DATE: 20210312
